FAERS Safety Report 4284900-1 (Version None)
Quarter: 2004Q1

REPORT INFORMATION
  Report Type: 
  Country: None (occurrence: None)
  Receive Date: 20040203
  Receipt Date: 20040203
  Transmission Date: 20041129
  Serious: Yes (Life-Threatening, Hospitalization)
  Sender: FDA-Public Use
  Company Number: None

PATIENT
  Age: 72 Year
  Sex: Male
  Weight: 70.7611 kg

DRUGS (1)
  1. CORDARONE [Suspect]
     Indication: CARDIAC DISORDER
     Dosage: ONCE DAILY

REACTIONS (3)
  - INTERSTITIAL LUNG DISEASE [None]
  - PULMONARY OEDEMA [None]
  - PULMONARY TOXICITY [None]
